FAERS Safety Report 5199865-8 (Version None)
Quarter: 2006Q4

REPORT INFORMATION
  Report Type: 
  Country: None (occurrence: None)
  Receive Date: 20061229
  Receipt Date: 20061215
  Transmission Date: 20070319
  Serious: Yes (Hospitalization)
  Sender: FDA-Public Use
  Company Number: PHBS2006JP17581

PATIENT
  Age: 65 Year
  Sex: Male
  Weight: 53 kg

DRUGS (13)
  1. LAMISIL [Suspect]
     Indication: NAIL TINEA
     Dosage: TOPICAL
     Route: 061
     Dates: start: 20050604, end: 20061004
  2. ASTAT (LANCONAZOLE) SOLUTION [Suspect]
     Dosage: TOPICAL
     Route: 061
     Dates: start: 20050702, end: 20061004
  3. NIKORANMART (NICORANDIL) [Concomitant]
  4. NICHISTATE (TICLOPIDINE HYDROCHLORIDE) [Concomitant]
  5. LIVALO KOWA(ITAVASTATIN CALCIUM) [Concomitant]
  6. MUCOSTA (REBAMIPIDE) [Concomitant]
  7. ASPIRIN [Concomitant]
  8. LANSOPRAZOLE [Concomitant]
  9. BISOPROLOL FUMARATE [Concomitant]
  10. DIOVAN [Concomitant]
  11. TICLOPIDINE HCL [Concomitant]
  12. SIGMART (NICORANDIL) [Concomitant]
  13. LOXONIN (LOXOPROFEN SODIUM) [Concomitant]

REACTIONS (2)
  - ANGINA PECTORIS [None]
  - WHITE BLOOD CELL COUNT DECREASED [None]
